FAERS Safety Report 9580354 (Version 1)
Quarter: 2013Q4

REPORT INFORMATION
  Report Type: Spontaneous
  Country: US (occurrence: US)
  Receive Date: 20131002
  Receipt Date: 20131002
  Transmission Date: 20140711
  Serious: Yes (Other)
  Sender: FDA-Public Use
  Company Number: PHHY2013US106536

PATIENT
  Sex: Female

DRUGS (13)
  1. XOLAIR [Suspect]
     Indication: SEASONAL ALLERGY
     Dosage: 02 PER WEEKS
  2. XOLAIR [Suspect]
     Dosage: UNK UKN, UNK
  3. XOLAIR [Suspect]
     Dosage: 2 PER WEEKS
  4. POTASSIUM CHLORIDE [Suspect]
     Dosage: 10 MG, 4 PER DAY
  5. TOPIRAMATE [Suspect]
     Dosage: 100 MG, 2 PER DAY
  6. BUTALBITAL [Suspect]
     Dosage: 50 UKN, UNK
  7. BUTALBITAL [Suspect]
     Dosage: 325 UKN, UNK
  8. BUTALBITAL [Suspect]
     Dosage: 40 UKN, UNK
  9. BUTALBITAL [Suspect]
     Dosage: 30 UKN, UNK
  10. ZANTAC [Suspect]
     Dosage: 150 MG, 2 PER DAY
  11. ZETIA [Suspect]
     Dosage: 10 MG, UNK
  12. ASPIRIN [Concomitant]
     Dosage: 81 MG, ONCE PER DAY
  13. B COMPLEX [Concomitant]
     Dosage: UNK UKN, QD

REACTIONS (10)
  - Arrhythmia [Unknown]
  - Heart rate irregular [Unknown]
  - Throat tightness [Unknown]
  - Hyperhidrosis [Unknown]
  - Dysphagia [Unknown]
  - Throat irritation [Unknown]
  - Blood pressure decreased [Unknown]
  - Hypersensitivity [Unknown]
  - Headache [Unknown]
  - Nausea [Unknown]
